FAERS Safety Report 24337957 (Version 1)
Quarter: 2024Q3

REPORT INFORMATION
  Report Type: Report from Study
  Country: EG (occurrence: EG)
  Receive Date: 20240919
  Receipt Date: 20240919
  Transmission Date: 20241017
  Serious: Yes (Other)
  Sender: RANBAXY
  Company Number: EG-SUN PHARMACEUTICAL INDUSTRIES LTD-2024RR-468616

PATIENT

DRUGS (2)
  1. IMATINIB [Suspect]
     Active Substance: IMATINIB
     Indication: Chronic leukaemia
     Dosage: 400 MILLIGRAM, DAILY
     Route: 065
     Dates: start: 202301, end: 202401
  2. DASATINIB [Concomitant]
     Active Substance: DASATINIB
     Indication: Leukaemia
     Dosage: UNK
     Route: 065

REACTIONS (1)
  - Therapy partial responder [Unknown]
